FAERS Safety Report 6064270-9 (Version None)
Quarter: 2009Q1

REPORT INFORMATION
  Report Type: 
  Country: None (occurrence: None)
  Receive Date: 20090204
  Receipt Date: 20090126
  Transmission Date: 20090719
  Serious: Yes (Hospitalization, Other)
  Sender: FDA-Public Use
  Company Number: US-BIOGENIDEC-2009BI003133

PATIENT
  Age: 33 Year
  Sex: Female
  Weight: 40 kg

DRUGS (2)
  1. AVONEX [Suspect]
     Indication: MULTIPLE SCLEROSIS
     Route: 030
  2. AVONEX [Suspect]
     Route: 030

REACTIONS (4)
  - CATATONIA [None]
  - CONVULSION [None]
  - GRAND MAL CONVULSION [None]
  - MULTIPLE SCLEROSIS [None]
